FAERS Safety Report 10161724 (Version 1)
Quarter: 2014Q2

REPORT INFORMATION
  Report Type: Spontaneous
  Country: US (occurrence: US)
  Receive Date: 20140509
  Receipt Date: 20140509
  Transmission Date: 20141212
  Serious: Yes (Hospitalization, Other)
  Sender: FDA-Public Use
  Company Number: US-TEVA-480143USA

PATIENT
  Age: 50 Year
  Sex: Female
  Weight: 131 kg

DRUGS (8)
  1. ACTIQ [Suspect]
     Indication: BACK PAIN
  2. ACTIQ [Suspect]
     Indication: MULTIPLE SCLEROSIS
  3. DILAUDID [Concomitant]
     Indication: BACK PAIN
  4. DILAUDID [Concomitant]
     Indication: MUSCLE SPASMS
  5. DILAUDID [Concomitant]
     Indication: MULTIPLE SCLEROSIS
  6. FENTANYL [Concomitant]
     Indication: BACK PAIN
  7. FENTANYL [Concomitant]
     Indication: MUSCLE SPASMS
  8. FENTANYL [Concomitant]
     Indication: MULTIPLE SCLEROSIS

REACTIONS (4)
  - Urinary tract infection [Not Recovered/Not Resolved]
  - Staphylococcal infection [Not Recovered/Not Resolved]
  - Bladder catheterisation [Not Recovered/Not Resolved]
  - Off label use [Unknown]
